FAERS Safety Report 7747117-1 (Version None)
Quarter: 2011Q3

REPORT INFORMATION
  Report Type: 
  Country: None (occurrence: None)
  Receive Date: 20110913
  Receipt Date: 20110831
  Transmission Date: 20111222
  Serious: Yes (Death, Other)
  Sender: FDA-Public Use
  Company Number: US-PFIZER INC-2011170951

PATIENT
  Sex: Male
  Weight: 74.83 kg

DRUGS (5)
  1. MORPHINE SULFATE [Suspect]
     Indication: PAIN
     Dosage: UNK
  2. DURAGESIC-100 [Suspect]
     Indication: PAIN
     Dosage: UNK
  3. OXYCONTIN [Suspect]
     Indication: PAIN
     Dosage: UNK
     Route: 048
     Dates: start: 20010101
  4. POTASSIUM CHLORIDE [Suspect]
     Indication: PAIN
     Dosage: UNK
  5. MORPHINE SULFATE [Suspect]
     Indication: PAIN

REACTIONS (3)
  - COMA [None]
  - MULTIPLE DRUG OVERDOSE ACCIDENTAL [None]
  - NON-SMALL CELL LUNG CANCER STAGE IV [None]
